FAERS Safety Report 7866180-0 (Version None)
Quarter: 2011Q4

REPORT INFORMATION
  Report Type: 
  Country: None (occurrence: None)
  Receive Date: 20111028
  Receipt Date: 20110502
  Transmission Date: 20120403
  Serious: No
  Sender: FDA-Public Use
  Company Number: US-GLAXOSMITHKLINE-A0926457A

PATIENT
  Age: 78 Year
  Sex: Male
  Weight: 95.5 kg

DRUGS (5)
  1. FEXOFENADINE [Concomitant]
     Dosage: 180MG PER DAY
     Route: 048
  2. SIMVASTATIN [Concomitant]
     Dosage: 40MG PER DAY
     Route: 048
  3. COMBIVENT [Concomitant]
     Route: 048
  4. ADVAIR DISKUS 100/50 [Suspect]
     Dosage: 1PUFF TWICE PER DAY
     Route: 048
  5. ASPIRIN [Concomitant]
     Dosage: 81MG PER DAY
     Route: 048

REACTIONS (5)
  - INCORRECT DOSE ADMINISTERED BY DEVICE [None]
  - PRODUCT QUALITY ISSUE [None]
  - DRUG ADMINISTRATION ERROR [None]
  - DRUG INEFFECTIVE [None]
  - DYSPNOEA [None]
